FAERS Safety Report 12848217 (Version 1)
Quarter: 2016Q4

REPORT INFORMATION
  Report Type: Spontaneous
  Country: US (occurrence: US)
  Receive Date: 20161014
  Receipt Date: 20161014
  Transmission Date: 20170207
  Serious: No
  Sender: FDA-Public Use
  Company Number: US-JNJFOC-20160718828

PATIENT
  Age: 81 Year
  Sex: Female
  Weight: 78.47 kg

DRUGS (9)
  1. TYLENOL EXTRA STRENGTH [Suspect]
     Active Substance: ACETAMINOPHEN
     Indication: ARTHRALGIA
     Dosage: WHEN NEEDED
     Route: 048
  2. TYLENOL 8 HR ARTHRITIS PAIN [Concomitant]
     Active Substance: ACETAMINOPHEN
     Indication: ARTHRALGIA
     Route: 048
  3. COUMADIN [Concomitant]
     Active Substance: WARFARIN SODIUM
     Indication: ANTICOAGULANT THERAPY
     Route: 065
  4. DYAZIDE [Concomitant]
     Active Substance: HYDROCHLOROTHIAZIDE\TRIAMTERENE
     Indication: FLUID RETENTION
     Route: 065
  5. CALCIUM [Concomitant]
     Active Substance: CALCIUM
     Indication: VITAMIN SUPPLEMENTATION
     Route: 065
  6. SYNTHROID [Concomitant]
     Active Substance: LEVOTHYROXINE SODIUM
     Indication: THYROID DISORDER
     Route: 065
  7. RANITIDINE. [Concomitant]
     Active Substance: RANITIDINE
     Indication: GASTROOESOPHAGEAL REFLUX DISEASE
     Route: 065
  8. RANITIDINE. [Concomitant]
     Active Substance: RANITIDINE
     Indication: DYSPEPSIA
     Route: 065
  9. PRAVASTATIN. [Concomitant]
     Active Substance: PRAVASTATIN
     Indication: BLOOD CHOLESTEROL
     Route: 065

REACTIONS (2)
  - Drug administration error [Unknown]
  - Incorrect dose administered [Unknown]
